FAERS Safety Report 8788680 (Version 2)
Quarter: 2012Q4

REPORT INFORMATION
  Report Type: 
  Country: CA (occurrence: CA)
  Receive Date: 20120914
  Receipt Date: 20121221
  Transmission Date: 20130627
  Serious: Yes (Death)
  Sender: FDA-Public Use
  Company Number: PHHY2012CA080159

PATIENT
  Age: 94 Year
  Sex: Female

DRUGS (2)
  1. ACLASTA [Suspect]
     Indication: OSTEOPOROSIS
     Dosage: UNK
     Route: 042
     Dates: start: 20100923
  2. ACLASTA [Suspect]
     Dosage: UNK
     Route: 042
     Dates: start: 20111007

REACTIONS (1)
  - Death [Fatal]
